FAERS Safety Report 9521468 (Version 2)
Quarter: 2013Q3

REPORT INFORMATION
  Report Type: Spontaneous
  Country: US (occurrence: None)
  Receive Date: 20130909
  Receipt Date: 20130916
  Transmission Date: 20140515
  Serious: Yes (Other)
  Sender: FDA-Public Use
  Company Number: 2013037852

PATIENT
  Sex: Female

DRUGS (3)
  1. HIZENTRA (IMMUNOGLOBULIN HUMAN NORMAL) [Suspect]
  2. VFEND (VORICONAZOLE) INFUSION [Suspect]
  3. ISONIAZID (ISONIAZID) [Suspect]

REACTIONS (1)
  - Hepatic failure [None]
